FAERS Safety Report 19130281 (Version 9)
Quarter: 2021Q3

REPORT INFORMATION
  Report Type: Report from Study
  Country: IT (occurrence: IT)
  Receive Date: 20210413
  Receipt Date: 20210908
  Transmission Date: 20211014
  Serious: Yes (Life-Threatening, Hospitalization)
  Sender: FDA-Public Use
  Company Number: IT-ROCHE-2799470

PATIENT
  Age: 72 Year
  Sex: Male
  Weight: 63 kg

DRUGS (41)
  1. POLATUZUMAB VEDOTIN. [Suspect]
     Active Substance: POLATUZUMAB VEDOTIN
     Indication: DIFFUSE LARGE B-CELL LYMPHOMA
     Dosage: ON 04/MAR/2021 AT 11:00 AM, HE RECEIVED MOST RECENT DOSE 121 MG IN 100 ML OF STUDY DRUG PRIOR TO AE
     Route: 042
     Dates: start: 20210304
  2. PARACETAMOL [Concomitant]
     Active Substance: ACETAMINOPHEN
     Route: 048
     Dates: start: 20210309, end: 20210309
  3. DEXAMETHASONE. [Concomitant]
     Active Substance: DEXAMETHASONE
     Route: 042
     Dates: start: 20210323, end: 20210323
  4. CETIRIZINE [Concomitant]
     Active Substance: CETIRIZINE HYDROCHLORIDE
     Indication: RASH
     Dates: start: 20210327, end: 20210331
  5. ENOXAPARINE SODIQUE [Concomitant]
     Active Substance: ENOXAPARIN SODIUM
     Dates: start: 20210524
  6. PARACETAMOL [Concomitant]
     Active Substance: ACETAMINOPHEN
     Indication: CYTOKINE RELEASE SYNDROME
     Dates: start: 20210309, end: 20210310
  7. PARACETAMOL [Concomitant]
     Active Substance: ACETAMINOPHEN
     Route: 048
     Dates: start: 20210303, end: 20210303
  8. PARACETAMOL [Concomitant]
     Active Substance: ACETAMINOPHEN
     Dates: start: 20210327, end: 20210327
  9. DEXAMETHASONE. [Concomitant]
     Active Substance: DEXAMETHASONE
     Route: 042
     Dates: start: 20210303, end: 20210303
  10. CLORFENAMINA [Concomitant]
     Active Substance: CHLORPHENIRAMINE MALEATE
     Route: 042
     Dates: start: 20210304, end: 20210304
  11. LANSOPRAZOLE. [Concomitant]
     Active Substance: LANSOPRAZOLE
     Dates: start: 202005, end: 20210325
  12. PARACETAMOL [Concomitant]
     Active Substance: ACETAMINOPHEN
     Route: 048
     Dates: start: 20210316, end: 20210316
  13. CLORFENAMINA [Concomitant]
     Active Substance: CHLORPHENIRAMINE MALEATE
     Route: 042
     Dates: start: 20210316, end: 20210316
  14. ACYCLOVIR. [Concomitant]
     Active Substance: ACYCLOVIR
     Dates: start: 202005, end: 20210331
  15. CLONIDINE. [Concomitant]
     Active Substance: CLONIDINE
     Indication: HYPERTENSION
     Dates: start: 20210405
  16. PANTOPRAZOLE [Concomitant]
     Active Substance: PANTOPRAZOLE
     Dates: start: 20210518
  17. BECLOMETASONE [Concomitant]
     Active Substance: BECLOMETHASONE DIPROPIONATE
     Dates: start: 20210310, end: 20210314
  18. OXYGEN. [Concomitant]
     Active Substance: OXYGEN
     Indication: HYPOXIA
     Dosage: 4 LT/MIN
     Dates: start: 20210309, end: 20210312
  19. OXYGEN. [Concomitant]
     Active Substance: OXYGEN
     Indication: TUMOUR FLARE
  20. CLORFENAMINA [Concomitant]
     Active Substance: CHLORPHENIRAMINE MALEATE
     Route: 042
     Dates: start: 20210309, end: 20210309
  21. CLORFENAMINA [Concomitant]
     Active Substance: CHLORPHENIRAMINE MALEATE
     Dates: start: 20210327, end: 20210327
  22. LEVETIRACETAM. [Concomitant]
     Active Substance: LEVETIRACETAM
     Dates: start: 20210308, end: 20210331
  23. CLEXANE [Concomitant]
     Active Substance: ENOXAPARIN SODIUM
     Dates: start: 20210405, end: 20210405
  24. GLOFITAMAB. [Suspect]
     Active Substance: GLOFITAMAB
     Indication: DIFFUSE LARGE B-CELL LYMPHOMA
     Dosage: ON 16/MAR/2021 AT 11:05 AM, HE RECEIVED MOST RECENT DOSE OF STUDY DRUG 10 MG PRIOR TO AE AND WAS END
     Route: 042
     Dates: start: 20210309
  25. OBINUTUZUMAB. [Suspect]
     Active Substance: OBINUTUZUMAB
     Indication: DIFFUSE LARGE B-CELL LYMPHOMA
     Dosage: ON 03/MAR/2021 AT 11:30 AM, HE RECEIVED MOST RECENT DOSE OF STUDY DRUG 1000 MG PRIOR TO AE + SAE AND
     Route: 042
     Dates: start: 20210303
  26. BECLOMETASONE [Concomitant]
     Active Substance: BECLOMETHASONE DIPROPIONATE
     Indication: BRONCHOSPASM
     Dates: start: 20210305, end: 20210305
  27. PARACETAMOL [Concomitant]
     Active Substance: ACETAMINOPHEN
     Indication: PYREXIA
     Route: 048
     Dates: start: 20210304, end: 20210304
  28. DEXAMETHASONE. [Concomitant]
     Active Substance: DEXAMETHASONE
     Route: 042
     Dates: start: 20210316, end: 20210316
  29. DEXAMETHASONE. [Concomitant]
     Active Substance: DEXAMETHASONE
     Route: 042
     Dates: start: 20210309, end: 20210309
  30. CLORFENAMINA [Concomitant]
     Active Substance: CHLORPHENIRAMINE MALEATE
     Route: 042
     Dates: start: 20210323, end: 20210323
  31. BACTRIM [Concomitant]
     Active Substance: SULFAMETHOXAZOLE\TRIMETHOPRIM
     Dates: start: 20210303
  32. OMEPRAZOLE. [Concomitant]
     Active Substance: OMEPRAZOLE
     Dates: start: 20210326, end: 20210331
  33. LEVOFLOXACINE [Concomitant]
     Active Substance: LEVOFLOXACIN
     Indication: CYTOKINE RELEASE SYNDROME
     Dates: start: 20210310, end: 20210318
  34. VALCYTE [Concomitant]
     Active Substance: VALGANCICLOVIR HYDROCHLORIDE
     Indication: CYTOMEGALOVIRUS INFECTION REACTIVATION
     Dates: start: 20210315, end: 20210322
  35. DIBASE [Concomitant]
     Active Substance: CHOLECALCIFEROL
     Dates: start: 202005, end: 20210331
  36. G?CSF (GRANULOCYTE?COLONY STIMULATING FACTOR) (UNK INGREDIENTS) [Concomitant]
     Indication: PROPHYLAXIS
     Dates: start: 20210330, end: 20210401
  37. PARACETAMOL [Concomitant]
     Active Substance: ACETAMINOPHEN
     Route: 048
     Dates: start: 20210323, end: 20210323
  38. CLORFENAMINA [Concomitant]
     Active Substance: CHLORPHENIRAMINE MALEATE
     Indication: RASH
     Route: 042
     Dates: start: 20210303, end: 20210303
  39. CLORFENAMINA [Concomitant]
     Active Substance: CHLORPHENIRAMINE MALEATE
     Dates: start: 20210329, end: 20210329
  40. ALLOPURINOL. [Concomitant]
     Active Substance: ALLOPURINOL
     Indication: HYPERURICAEMIA
     Dates: start: 20210303, end: 20210326
  41. OXATOMIDE [Concomitant]
     Active Substance: OXATOMIDE
     Indication: RASH
     Dates: start: 20210320, end: 20210320

REACTIONS (1)
  - Jejunal perforation [Recovered/Resolved]

NARRATIVE: CASE EVENT DATE: 20210320
